FAERS Safety Report 9807813 (Version 3)
Quarter: 2014Q2

REPORT INFORMATION
  Report Type: Report from Study
  Country: IE (occurrence: IE)
  Receive Date: 20140110
  Receipt Date: 20140425
  Transmission Date: 20141212
  Serious: Yes (Hospitalization)
  Sender: FDA-Public Use
  Company Number: IE-US-EMD SERONO, INC.-7258777

PATIENT
  Age: 58 Year
  Sex: Male

DRUGS (6)
  1. REBIF [Suspect]
     Indication: SECONDARY PROGRESSIVE MULTIPLE SCLEROSIS
     Route: 058
     Dates: start: 20030428
  2. COVERSYL                           /00790701/ [Concomitant]
     Indication: BLOOD PRESSURE ABNORMAL
  3. NEXIUM                             /01479302/ [Concomitant]
     Indication: PRODUCT USED FOR UNKNOWN INDICATION
  4. DIAZEPAM [Concomitant]
     Indication: PRODUCT USED FOR UNKNOWN INDICATION
  5. PARACETAMOL [Concomitant]
     Indication: PRODUCT USED FOR UNKNOWN INDICATION
  6. ATENOLOL [Concomitant]
     Indication: HYPERTENSION

REACTIONS (8)
  - Sepsis [Unknown]
  - Leg amputation [Unknown]
  - Leg amputation [Unknown]
  - Malaise [Unknown]
  - Drug intolerance [Unknown]
  - Injection site rash [Not Recovered/Not Resolved]
  - Fatigue [Not Recovered/Not Resolved]
  - Off label use [Unknown]
